FAERS Safety Report 15130370 (Version 2)
Quarter: 2018Q3

REPORT INFORMATION
  Report Type: Report from Study
  Country: IT (occurrence: IT)
  Receive Date: 20180711
  Receipt Date: 20180723
  Transmission Date: 20181010
  Serious: Yes (Life-Threatening, Hospitalization)
  Sender: FDA-Public Use
  Company Number: IT-CELGENEUS-ITA-20180701097

PATIENT
  Age: 63 Year
  Sex: Female
  Weight: 64.6 kg

DRUGS (11)
  1. ETOPOSIDE. [Suspect]
     Active Substance: ETOPOSIDE
     Indication: PERIPHERAL T-CELL LYMPHOMA UNSPECIFIED
     Dosage: 100 MILLIGRAM/SQ. METER
     Route: 041
     Dates: start: 20180419, end: 20180623
  2. CYCLOPHOSPHAMIDE. [Suspect]
     Active Substance: CYCLOPHOSPHAMIDE
     Indication: PERIPHERAL T-CELL LYMPHOMA UNSPECIFIED
     Dosage: 750 MILLIGRAM/SQ. METER
     Route: 041
     Dates: start: 20180419, end: 20180623
  3. DOXORUBICIN [Suspect]
     Active Substance: DOXORUBICIN
     Indication: PERIPHERAL T-CELL LYMPHOMA UNSPECIFIED
     Dosage: 50 MILLIGRAM/SQ. METER
     Route: 041
     Dates: start: 20180419, end: 20180623
  4. PREDNISONE. [Suspect]
     Active Substance: PREDNISONE
     Route: 048
     Dates: start: 20180628, end: 20180630
  5. PANTOPRAZOLE [Concomitant]
     Active Substance: PANTOPRAZOLE
     Indication: PRODUCT USED FOR UNKNOWN INDICATION
     Route: 065
     Dates: start: 20180419
  6. ISTODAX [Suspect]
     Active Substance: ROMIDEPSIN
     Indication: PERIPHERAL T-CELL LYMPHOMA UNSPECIFIED
     Dosage: 14 MILLIGRAM/SQ. METER
     Route: 041
     Dates: start: 20180419, end: 20180629
  7. PREDNISONE. [Suspect]
     Active Substance: PREDNISONE
     Indication: PERIPHERAL T-CELL LYMPHOMA UNSPECIFIED
     Dosage: 100 MILLIGRAM
     Route: 048
     Dates: start: 20180419, end: 20180627
  8. FILGRASTIM [Concomitant]
     Active Substance: FILGRASTIM
     Indication: PRODUCT USED FOR UNKNOWN INDICATION
     Route: 065
     Dates: start: 20180627, end: 20180705
  9. VINCRISTIN [Suspect]
     Active Substance: VINCRISTINE
     Indication: PERIPHERAL T-CELL LYMPHOMA UNSPECIFIED
     Dosage: 1.4 MILLIGRAM/SQ. METER
     Route: 041
     Dates: start: 20180419, end: 20180623
  10. AUGMENTIN [Concomitant]
     Active Substance: AMOXICILLIN\CLAVULANATE POTASSIUM
     Indication: PRODUCT USED FOR UNKNOWN INDICATION
     Route: 065
     Dates: start: 20180701, end: 20180702
  11. ATENOLOLE [Concomitant]
     Indication: PRODUCT USED FOR UNKNOWN INDICATION
     Route: 065
     Dates: start: 20180319

REACTIONS (1)
  - Febrile neutropenia [Recovered/Resolved]

NARRATIVE: CASE EVENT DATE: 20180702
